FAERS Safety Report 5502776-9 (Version None)
Quarter: 2007Q4

REPORT INFORMATION
  Report Type: 
  Country: None (occurrence: None)
  Receive Date: 20071029
  Receipt Date: 20071023
  Transmission Date: 20080405
  Serious: Yes (Death)
  Sender: FDA-Public Use
  Company Number: 2007S1000238

PATIENT

DRUGS (4)
  1. CUBICIN [Suspect]
     Indication: ENDOCARDITIS STAPHYLOCOCCAL
     Dosage: 7.0 MG/KG;Q24H;
  2. CUBICIN [Suspect]
     Indication: PATHOGEN RESISTANCE
     Dosage: 7.0 MG/KG;Q24H;
  3. GENTAMICIN [Concomitant]
  4. VANCOMYCIN [Concomitant]

REACTIONS (6)
  - ABSCESS [None]
  - ABSCESS RUPTURE [None]
  - AORTIC DISORDER [None]
  - AORTIC VALVE INCOMPETENCE [None]
  - CARDIAC VALVE ABSCESS [None]
  - DISEASE COMPLICATION [None]
